FAERS Safety Report 9230403 (Version 1)
Quarter: 2013Q2

REPORT INFORMATION
  Report Type: Spontaneous
  Country: DE (occurrence: None)
  Receive Date: 20130411
  Receipt Date: 20130411
  Transmission Date: 20140414
  Serious: Yes (Other)
  Sender: FDA-Public Use
  Company Number: INT_00238_2013

PATIENT
  Age: 9 Year
  Sex: Female
  Weight: 23 kg

DRUGS (1)
  1. MEROPENEM (MEROPENEM) [Suspect]
     Indication: INFECTION
     Dosage: (1.3 G  QD INTRAVENOUS BOLUS)
     Route: 040
     Dates: start: 20130311, end: 20130311

REACTIONS (4)
  - Anaphylactic reaction [None]
  - Incorrect drug administration rate [None]
  - Incorrect dose administered [None]
  - Wrong technique in drug usage process [None]
